FAERS Safety Report 10227552 (Version 1)
Quarter: 2014Q2

REPORT INFORMATION
  Report Type: Spontaneous
  Country: US (occurrence: None)
  Receive Date: 20140609
  Receipt Date: 20140609
  Transmission Date: 20141212
  Serious: Yes (Disabling)
  Sender: FDA-Public Use
  Company Number: None

PATIENT
  Age: 88 Year
  Sex: Male
  Weight: 95.26 kg

DRUGS (2)
  1. LEVOFLOXACIN [Suspect]
     Indication: URINARY TRACT INFECTION
     Dosage: 1 ONCE DAILY
     Route: 048
     Dates: start: 20140416, end: 20140529
  2. LEVOFLOXACIN [Suspect]
     Indication: SEPSIS
     Dosage: 1 ONCE DAILY
     Route: 048
     Dates: start: 20140416, end: 20140529

REACTIONS (2)
  - Hypoaesthesia [None]
  - Paraesthesia [None]
